FAERS Safety Report 5038684-X (Version None)
Quarter: 2006Q2

REPORT INFORMATION
  Report Type: 
  Country: None (occurrence: None)
  Receive Date: 20060623
  Receipt Date: 20060616
  Transmission Date: 20061013
  Serious: Yes (Other)
  Sender: FDA-Public Use
  Company Number: HQWYE254916JUN06

PATIENT
  Age: 76 Year
  Sex: Male

DRUGS (1)
  1. CORDARONE [Suspect]
     Indication: CARDIOVASCULAR DISORDER

REACTIONS (4)
  - DYSPHONIA [None]
  - MUSCULAR WEAKNESS [None]
  - PULMONARY FIBROSIS [None]
  - VISION BLURRED [None]
